FAERS Safety Report 5515498-5 (Version None)
Quarter: 2007Q4

REPORT INFORMATION
  Report Type: 
  Country: None (occurrence: None)
  Receive Date: 20071113
  Receipt Date: 20070306
  Transmission Date: 20080405
  Serious: No
  Sender: FDA-Public Use
  Company Number: A0642105A

PATIENT
  Sex: Male

DRUGS (7)
  1. COREG [Suspect]
     Indication: HYPERTENSION
     Dosage: 6.25MG TWICE PER DAY
     Route: 048
     Dates: start: 20070101
  2. LOTREL [Concomitant]
  3. COUMADIN [Concomitant]
  4. GLUCOPHAGE [Concomitant]
  5. TRIAMTERENE AND HYDROCHLOROTHIAZIDE [Concomitant]
  6. TYLENOL [Concomitant]
  7. GARLIC SUPPLEMENT [Concomitant]

REACTIONS (2)
  - BLOOD GLUCOSE INCREASED [None]
  - BLOOD PRESSURE DIASTOLIC INCREASED [None]
